FAERS Safety Report 7911990-4 (Version None)
Quarter: 2011Q4

REPORT INFORMATION
  Report Type: 
  Country: None (occurrence: None)
  Receive Date: 20111104
  Receipt Date: 20111007
  Transmission Date: 20120403
  Serious: No
  Sender: FDA-Public Use
  Company Number: 2011000188

PATIENT
  Sex: Female

DRUGS (1)
  1. ULESFIA [Suspect]
     Dosage: APPLIED 4 BOTTLES

REACTIONS (1)
  - DRUG INEFFECTIVE [None]
